FAERS Safety Report 4459263-9 (Version None)
Quarter: 2004Q3

REPORT INFORMATION
  Report Type: 
  Country: None (occurrence: None)
  Receive Date: 20040922
  Receipt Date: 20040922
  Transmission Date: 20050211
  Serious: Yes (Hospitalization)
  Sender: FDA-Public Use
  Company Number: None

PATIENT
  Age: 73 Year
  Sex: Male
  Weight: 111.5 kg

DRUGS (5)
  1. FUROSEMIDE [Suspect]
     Indication: CARDIAC FAILURE CONGESTIVE
     Dosage: 100 MB BID ORAL
     Route: 048
     Dates: start: 20040628, end: 20040630
  2. FUROSEMIDE [Suspect]
     Indication: OEDEMA
     Dosage: 100 MB BID ORAL
     Route: 048
     Dates: start: 20040628, end: 20040630
  3. METOLAZONE [Suspect]
     Indication: CARDIAC FAILURE CONGESTIVE
     Dosage: 5 MG QDAY ORAL
     Route: 048
  4. METOLAZONE [Suspect]
     Indication: OEDEMA
     Dosage: 5 MG QDAY ORAL
     Route: 048
  5. SPIRONOLACTONE [Concomitant]

REACTIONS (4)
  - HYPOKALAEMIA [None]
  - NAUSEA [None]
  - URINARY TRACT INFECTION [None]
  - VOMITING [None]
